FAERS Safety Report 25897500 (Version 1)
Quarter: 2025Q4

REPORT INFORMATION
  Report Type: Spontaneous
  Country: CN (occurrence: CN)
  Receive Date: 20251008
  Receipt Date: 20251008
  Transmission Date: 20260118
  Serious: Yes (Hospitalization)
  Sender: NOVO NORDISK
  Company Number: CN-NOVOPROD-1532603

PATIENT
  Age: 54 Year
  Sex: Male
  Weight: 86 kg

DRUGS (2)
  1. VICTOZA [Suspect]
     Active Substance: LIRAGLUTIDE
     Indication: Weight control
  2. VICTOZA [Suspect]
     Active Substance: LIRAGLUTIDE
     Indication: Blood glucose increased
     Dosage: UNK
     Dates: start: 2023

REACTIONS (3)
  - Intestinal polyp [Unknown]
  - Type 2 diabetes mellitus [Unknown]
  - Product use in unapproved indication [Recovered/Resolved]

NARRATIVE: CASE EVENT DATE: 20250601
